FAERS Safety Report 6625304-3 (Version None)
Quarter: 2010Q1

REPORT INFORMATION
  Report Type: 
  Country: None (occurrence: None)
  Receive Date: 20100223
  Receipt Date: 20091027
  Transmission Date: 20100710
  Serious: No
  Sender: FDA-Public Use
  Company Number: 8053801

PATIENT
  Sex: Male

DRUGS (1)
  1. CERTOLIZUMAB PEGOL             (UCB, INC) [Suspect]
     Indication: CROHN'S DISEASE
     Dosage: SUBCUTANEOUS
     Route: 058
     Dates: start: 20090610

REACTIONS (2)
  - PYREXIA [None]
  - VIRAL INFECTION [None]
